FAERS Safety Report 6409480-3 (Version None)
Quarter: 2009Q4

REPORT INFORMATION
  Report Type: 
  Country: None (occurrence: None)
  Receive Date: 20091016
  Receipt Date: 20091011
  Transmission Date: 20100525
  Serious: Yes (Hospitalization)
  Sender: FDA-Public Use
  Company Number: 2009SP005002

PATIENT
  Age: 40 Year
  Sex: Female

DRUGS (6)
  1. PEG-INTRON [Suspect]
     Indication: HEPATITIS C
     Dosage: SC; SC; SC; SC
     Route: 059
     Dates: start: 20081202, end: 20090122
  2. PEG-INTRON [Suspect]
     Indication: HEPATITIS C
     Dosage: SC; SC; SC; SC
     Route: 059
     Dates: start: 20090305
  3. PEG-INTRON [Suspect]
     Indication: HEPATITIS C
     Dosage: SC; SC; SC; SC
     Route: 059
     Dates: start: 20091007
  4. RIBAVIRIN [Suspect]
     Indication: HEPATITIS C
     Dosage: PO; PO; PO
     Route: 048
     Dates: start: 20081202, end: 20090122
  5. RIBAVIRIN [Suspect]
     Indication: HEPATITIS C
     Dosage: PO; PO; PO
     Route: 048
     Dates: start: 20090305
  6. RIBAVIRIN [Suspect]
     Indication: HEPATITIS C
     Dosage: PO; PO; PO
     Route: 048
     Dates: start: 20091007

REACTIONS (11)
  - ALOPECIA [None]
  - AMMONIA INCREASED [None]
  - BLOOD POTASSIUM DECREASED [None]
  - COMA [None]
  - CONFUSIONAL STATE [None]
  - CYSTITIS [None]
  - FALL [None]
  - HEAD INJURY [None]
  - LOSS OF CONSCIOUSNESS [None]
  - PNEUMONIA [None]
  - SKIN INFECTION [None]
